FAERS Safety Report 15293745 (Version 1)
Quarter: 2018Q4

REPORT INFORMATION
  Report Type: Spontaneous
  Country: IT (occurrence: IT)
  Receive Date: 20180820
  Receipt Date: 20180820
  Transmission Date: 20190204
  Serious: Yes (Death)
  Sender: FDA-Public Use
  Company Number: IT-AUROBINDO-AUR-APL-2018-042117

PATIENT
  Age: 1 Year
  Sex: Female

DRUGS (3)
  1. PARACETAMOL [Suspect]
     Active Substance: ACETAMINOPHEN
     Indication: PRODUCT USED FOR UNKNOWN INDICATION
     Dosage: UNK
     Route: 065
  2. IBUPROFEN. [Concomitant]
     Active Substance: IBUPROFEN
     Indication: PRODUCT USED FOR UNKNOWN INDICATION
     Dosage: UNK
     Route: 065
  3. PRIORIX-TETRA [Suspect]
     Active Substance: MEASLES-MUMPS-RUBELLA-VARICELLA VIRUS VACCINE, LIVE
     Indication: PRODUCT USED FOR UNKNOWN INDICATION
     Dosage: UNK
     Route: 065
     Dates: start: 20180411, end: 20180411

REACTIONS (2)
  - Anaemia [Fatal]
  - Hepatosplenomegaly [Fatal]

NARRATIVE: CASE EVENT DATE: 20180417
